FAERS Safety Report 17894632 (Version 1)
Quarter: 2020Q2

REPORT INFORMATION
  Report Type: Spontaneous
  Country: PL (occurrence: PL)
  Receive Date: 20200615
  Receipt Date: 20200615
  Transmission Date: 20200714
  Serious: Yes (Life-Threatening)
  Sender: FDA-Public Use
  Company Number: PL-ROCHE-2620020

PATIENT
  Age: 69 Year
  Weight: 106 kg

DRUGS (1)
  1. MABTHERA [Suspect]
     Active Substance: RITUXIMAB
     Indication: NON-HODGKIN^S LYMPHOMA
     Dosage: DOSE: 375 MG/BSA?INDICATION: OTHER SPECIFIED TYPES OF NON-HODGKIN LYMPHOMA
     Route: 041
     Dates: start: 20170808, end: 20170808

REACTIONS (3)
  - Hypotension [Recovered/Resolved]
  - Syncope [Recovered/Resolved]
  - Arthralgia [Recovered/Resolved]

NARRATIVE: CASE EVENT DATE: 20170809
